FAERS Safety Report 13054231 (Version 3)
Quarter: 2019Q4

REPORT INFORMATION
  Report Type: Spontaneous
  Country: US (occurrence: US)
  Receive Date: 20161222
  Receipt Date: 20191016
  Transmission Date: 20200122
  Serious: Yes (Other)
  Sender: FDA-Public Use
  Company Number: US-ELI_LILLY_AND_COMPANY-US201612007040

PATIENT
  Sex: Male

DRUGS (10)
  1. CIALIS [Suspect]
     Active Substance: TADALAFIL
     Indication: ERECTILE DYSFUNCTION
     Dosage: 20 MG, 2/W
     Route: 065
     Dates: start: 20110128, end: 20110301
  2. VIAGRA [Suspect]
     Active Substance: SILDENAFIL CITRATE
     Dosage: 100 MG, 2/W
     Route: 065
     Dates: end: 20110128
  3. CELEBREX [Concomitant]
     Active Substance: CELECOXIB
     Indication: SWELLING
  4. LORAZEPAM. [Concomitant]
     Active Substance: LORAZEPAM
     Indication: ANXIETY
     Dosage: UNK
     Dates: start: 2017
  5. NOVOLOG [Concomitant]
     Active Substance: INSULIN ASPART
     Indication: TYPE 2 DIABETES MELLITUS
     Dosage: UNK
     Dates: start: 2015
  6. SULFASALAZINE. [Concomitant]
     Active Substance: SULFASALAZINE
     Indication: ARTHRITIS
     Dosage: UNK
     Dates: start: 2016
  7. METOPROLOL SUCCINATE. [Concomitant]
     Active Substance: METOPROLOL SUCCINATE
     Indication: HYPERTENSION
     Dosage: UNK
     Dates: start: 2016
  8. VIAGRA [Suspect]
     Active Substance: SILDENAFIL CITRATE
     Indication: ERECTILE DYSFUNCTION
     Dosage: 100 MG, 2/W
     Route: 065
     Dates: start: 20050502, end: 20100409
  9. CELEBREX [Concomitant]
     Active Substance: CELECOXIB
     Indication: PAIN
     Dosage: UNK
     Dates: start: 2016
  10. HYDROCHLOROTHIAZIDE. [Concomitant]
     Active Substance: HYDROCHLOROTHIAZIDE
     Indication: ARTHRITIS
     Dosage: UNK
     Dates: start: 2016

REACTIONS (5)
  - Malignant melanoma in situ [Unknown]
  - Basal cell carcinoma [Recovered/Resolved]
  - Malignant melanoma stage III [Unknown]
  - Coronary artery disease [Not Recovered/Not Resolved]
  - Cerebrovascular accident [Recovered/Resolved]
